FAERS Safety Report 7219408-4 (Version None)
Quarter: 2011Q1

REPORT INFORMATION
  Report Type: 
  Country: None (occurrence: None)
  Receive Date: 20110111
  Receipt Date: 20110107
  Transmission Date: 20110831
  Serious: No
  Sender: FDA-Public Use
  Company Number: US-PFIZER INC-2011005017

PATIENT
  Sex: Female
  Weight: 59.864 kg

DRUGS (2)
  1. PROTONIX [Suspect]
     Indication: REFLUX GASTRITIS
     Dosage: 40 MG, 2X/DAY
     Route: 048
     Dates: start: 20080101
  2. SYNTHROID [Concomitant]
     Indication: HYPOTHYROIDISM
     Dosage: UNK

REACTIONS (3)
  - ABDOMINAL PAIN UPPER [None]
  - MUSCLE SPASMS [None]
  - DYSPEPSIA [None]
